FAERS Safety Report 8963014 (Version 2)
Quarter: 2013Q1

REPORT INFORMATION
  Report Type: Spontaneous
  Country: US (occurrence: US)
  Receive Date: 20121213
  Receipt Date: 20130122
  Transmission Date: 20140127
  Serious: Yes (Other)
  Sender: FDA-Public Use
  Company Number: US-PFIZER INC-2012315275

PATIENT
  Sex: Male

DRUGS (5)
  1. ZOLOFT [Suspect]
     Indication: DEPRESSION
     Dosage: UNK
  2. CONCERTA [Suspect]
     Indication: FATIGUE
     Dosage: 18 MG, DAILY
  3. CONCERTA [Suspect]
     Indication: DISTURBANCE IN ATTENTION
  4. KLONOPIN [Suspect]
     Indication: ANXIETY
     Dosage: 1MG AT ONE TO FOUR TIMES A DAY AS NEEDED
  5. WELLBUTRIN [Suspect]
     Indication: DEPRESSION
     Dosage: UNK

REACTIONS (5)
  - Pituitary tumour [Unknown]
  - Peyronie^s disease [Unknown]
  - Erectile dysfunction [Unknown]
  - Loss of libido [Unknown]
  - Drug effect decreased [Unknown]
